FAERS Safety Report 15166961 (Version 1)
Quarter: 2018Q3

REPORT INFORMATION
  Report Type: Spontaneous
  Country: ES (occurrence: ES)
  Receive Date: 20180719
  Receipt Date: 20180719
  Transmission Date: 20181010
  Serious: Yes (Hospitalization)
  Sender: FDA-Public Use
  Company Number: ES-009507513-1807ESP006835

PATIENT
  Age: 79 Year
  Sex: Female

DRUGS (6)
  1. ACETAMINOPHEN. [Suspect]
     Active Substance: ACETAMINOPHEN
     Indication: HEADACHE
     Dosage: 1 G, Q8H
     Route: 048
     Dates: start: 2018
  2. XELEVIA [Suspect]
     Active Substance: SITAGLIPTIN PHOSPHATE
     Indication: TYPE 2 DIABETES MELLITUS
     Dosage: 50 MG, QD
     Route: 048
     Dates: start: 20180409
  3. HYDROCHLOROTHIAZIDE AND LISINOPRIL [Concomitant]
     Active Substance: HYDROCHLOROTHIAZIDE\LISINOPRIL
     Indication: HYPERTENSION
     Dosage: 1 DF, QD
     Route: 048
  4. DIPYRONE [Suspect]
     Active Substance: DIPYRONE
     Indication: HEADACHE
     Dosage: UNK
     Route: 048
     Dates: start: 2018
  5. GLICLAZIDE [Concomitant]
     Active Substance: GLICLAZIDE
     Indication: TYPE 2 DIABETES MELLITUS
     Dosage: 30 MG, QD
     Route: 048
  6. DIAZEPAM. [Concomitant]
     Active Substance: DIAZEPAM
     Dosage: 5 MG, QD
     Route: 048

REACTIONS (1)
  - Pancreatic disorder [Recovered/Resolved]

NARRATIVE: CASE EVENT DATE: 20180428
